FAERS Safety Report 24243635 (Version 2)
Quarter: 2025Q2

REPORT INFORMATION
  Report Type: Spontaneous
  Country: GB (occurrence: GB)
  Receive Date: 20240823
  Receipt Date: 20250531
  Transmission Date: 20250716
  Serious: Yes (Hospitalization)
  Sender: STEMLINE THERAPEUTICS
  Company Number: GB-STEMLINE THERAPEUTICS, INC-2024-STML-GB001491

PATIENT

DRUGS (1)
  1. ELACESTRANT [Suspect]
     Active Substance: ELACESTRANT
     Indication: Product used for unknown indication
     Route: 065

REACTIONS (1)
  - Hip fracture [Unknown]
